FAERS Safety Report 15533525 (Version 1)
Quarter: 2018Q4

REPORT INFORMATION
  Report Type: Spontaneous
  Country: AU (occurrence: AU)
  Receive Date: 20181019
  Receipt Date: 20181019
  Transmission Date: 20190205
  Serious: Yes (Other)
  Sender: FDA-Public Use
  Company Number: AU-ABBVIE-18K-008-2523629-00

PATIENT
  Sex: Male

DRUGS (1)
  1. HUMIRA [Suspect]
     Active Substance: ADALIMUMAB
     Indication: PSORIATIC ARTHROPATHY
     Route: 058
     Dates: start: 2008, end: 2009

REACTIONS (9)
  - Psoriasis [Unknown]
  - Drug effect incomplete [Unknown]
  - Arthritis [Unknown]
  - Gastrointestinal infection [Unknown]
  - Appendicitis perforated [Unknown]
  - Psoriatic arthropathy [Unknown]
  - Otitis externa [Unknown]
  - Intestinal perforation [Unknown]
  - Abdominal abscess [Unknown]

NARRATIVE: CASE EVENT DATE: 2009
